FAERS Safety Report 6691674-3 (Version None)
Quarter: 2010Q2

REPORT INFORMATION
  Report Type: 
  Country: None (occurrence: None)
  Receive Date: 20100422
  Receipt Date: 20090603
  Transmission Date: 20101027
  Serious: No
  Sender: FDA-Public Use
  Company Number: US-ASTRAZENECA-2009UW14214

PATIENT
  Age: 68 Year
  Sex: Male

DRUGS (3)
  1. METOPROLOL SUCCINATE [Suspect]
     Route: 048
     Dates: start: 20090301
  2. METOPROLOL SUCCINATE [Suspect]
     Route: 048
     Dates: start: 20090401
  3. METOPROLOL SUCCINATE [Suspect]
     Route: 048
     Dates: start: 20090101

REACTIONS (3)
  - FEELING ABNORMAL [None]
  - LIBIDO DECREASED [None]
  - NAUSEA [None]
